FAERS Safety Report 5166727-1 (Version None)
Quarter: 2006Q4

REPORT INFORMATION
  Report Type: 
  Country: None (occurrence: None)
  Receive Date: 20061207
  Receipt Date: 20061129
  Transmission Date: 20070319
  Serious: Yes (Other)
  Sender: FDA-Public Use
  Company Number: CA-JNJFOC-20061200124

PATIENT
  Sex: Male
  Weight: 76.4 kg

DRUGS (13)
  1. REMICADE [Suspect]
     Indication: CROHN'S DISEASE
     Route: 042
  2. METHOTREXATE [Concomitant]
     Route: 050
  3. FOLIC ACID [Concomitant]
  4. FLOMAX [Concomitant]
  5. RIVA D [Concomitant]
  6. CALCIUM [Concomitant]
  7. ACTONEL [Concomitant]
  8. PMS-CHOLESTYRAMINE [Concomitant]
  9. NOVO-LOPERAMIDE [Concomitant]
     Dosage: 2 MG(1 AFTER EACH LIQUID BOWEL MOVEMENT, 8 CAP/DAY)
  10. LOZIDE [Concomitant]
  11. K-DUR 10 [Concomitant]
  12. ADALAT [Concomitant]
  13. VITAMIN B-12 [Concomitant]
     Dosage: 10 ML, 1 MG/ML INJECTABLE SOL, 1 ML SC ONCE MONTHLY
     Route: 058

REACTIONS (2)
  - ASTHENIA [None]
  - MALIGNANT MELANOMA [None]
